FAERS Safety Report 10178501 (Version 1)
Quarter: 2014Q2

REPORT INFORMATION
  Report Type: Spontaneous
  Country: US (occurrence: None)
  Receive Date: 20140516
  Receipt Date: 20140516
  Transmission Date: 20141212
  Serious: No
  Sender: FDA-Public Use
  Company Number: None

PATIENT
  Age: 79 Year
  Sex: Female

DRUGS (7)
  1. FORTEO 600 MCG LILY [Suspect]
     Indication: PRODUCT USED FOR UNKNOWN INDICATION
     Dosage: 20 MCG  DAILY SUB Q
     Route: 058
     Dates: start: 20130125
  2. PLAVIX [Concomitant]
  3. PARVAVASTIN [Concomitant]
  4. AMLODIPINE BESYLATE [Concomitant]
  5. PERCOCET [Concomitant]
  6. ASPIRIN [Concomitant]
  7. CALCIUM WITH VITAMIN D [Concomitant]

REACTIONS (1)
  - Herpes zoster [None]
